FAERS Safety Report 8762703 (Version 1)
Quarter: 2012Q4

REPORT INFORMATION
  Report Type: 
  Country: US (occurrence: US)
  Receive Date: 20120830
  Receipt Date: 20120830
  Transmission Date: 20130627
  Serious: Yes (Other)
  Sender: FDA-Public Use
  Company Number: US-AMGEN-USASP2012054572

PATIENT
  Age: 59 Year
  Sex: Female

DRUGS (2)
  1. PROLIA [Suspect]
     Indication: PROPHYLAXIS
     Dosage: 120mg, every 4 weeks
     Dates: start: 20120821
  2. CIPRO                              /00697201/ [Concomitant]

REACTIONS (1)
  - Medication error [Unknown]
